FAERS Safety Report 5338136-3 (Version None)
Quarter: 2007Q2

REPORT INFORMATION
  Report Type: 
  Country: None (occurrence: None)
  Receive Date: 20070530
  Receipt Date: 20070516
  Transmission Date: 20071010
  Serious: Yes (Other)
  Sender: FDA-Public Use
  Company Number: PHEH2007US05284

PATIENT
  Age: 38 Year
  Sex: Female
  Weight: 52.607 kg

DRUGS (16)
  1. ZELNORM [Suspect]
     Indication: IMPAIRED GASTRIC EMPTYING
     Dosage: 3 TABLETS, TID
     Route: 048
     Dates: start: 20050501
  2. ZELNORM [Suspect]
     Dosage: 12 MG, TID
     Route: 048
     Dates: start: 20051101
  3. ZELNORM [Suspect]
     Dosage: 18 MG, TID
     Route: 048
  4. CLONAZEPAM [Concomitant]
     Indication: ANXIETY
     Dosage: 1 MG, UNK
  5. CLONAZEPAM [Concomitant]
     Dosage: 0.5 MG, UNK
  6. SELEGILINE HCL [Concomitant]
  7. LORATADINE [Concomitant]
     Indication: HYPERSENSITIVITY
     Dosage: 10 MG, QD
     Route: 048
  8. PROVIGIL [Concomitant]
     Indication: DELAYED SLEEP PHASE
     Route: 048
  9. METHYLPHENIDATE HCL [Concomitant]
     Dosage: 72 MG, BID
     Route: 048
  10. METHYLPHENIDATE HCL [Concomitant]
     Dosage: 36 MG, BID
     Route: 048
  11. ALPRAZOLAM [Concomitant]
  12. AMBIEN [Concomitant]
     Dosage: UNK, PRN
     Route: 048
  13. SONATA [Concomitant]
     Dosage: 5 MG, PRN
     Route: 048
  14. SULFASALAZINE [Concomitant]
     Indication: PSORIATIC ARTHROPATHY
     Dosage: 1000 MG, BID
     Route: 048
  15. REMERON [Concomitant]
     Indication: DEPRESSION
     Dosage: 30 MG, UNK
     Route: 048
  16. NOVOLOG [Concomitant]
     Indication: DIABETES MELLITUS

REACTIONS (9)
  - ANXIETY [None]
  - CHEST PAIN [None]
  - COLITIS [None]
  - DYSPNOEA [None]
  - EAR CONGESTION [None]
  - HYPOAESTHESIA [None]
  - NASOPHARYNGITIS [None]
  - PRODUCTIVE COUGH [None]
  - WEIGHT DECREASED [None]
